FAERS Safety Report 5015378-8 (Version None)
Quarter: 2006Q2

REPORT INFORMATION
  Report Type: 
  Country: None (occurrence: None)
  Receive Date: 20060530
  Receipt Date: 20060530
  Transmission Date: 20061013
  Serious: Yes (Hospitalization)
  Sender: FDA-Public Use
  Company Number: None

PATIENT
  Age: 64 Year
  Sex: Female

DRUGS (8)
  1. TARCEVA [Suspect]
     Indication: BREAST CANCER METASTATIC
     Dosage: 100 MG Q DAY
     Dates: start: 20060223, end: 20060515
  2. RAD001 - NOVARTIS [Suspect]
     Indication: BREAST CANCER METASTATIC
     Dosage: 2.5 MG DAILY
     Dates: start: 20060223, end: 20060515
  3. HYZAAR [Concomitant]
  4. ZOCOR [Concomitant]
  5. LEXAPRO [Concomitant]
  6. BABY ASP [Concomitant]
  7. ATIVAN [Concomitant]
  8. COMPAZINE [Concomitant]

REACTIONS (3)
  - BILE DUCT OBSTRUCTION [None]
  - DISEASE PROGRESSION [None]
  - JAUNDICE [None]
